FAERS Safety Report 5639535-2 (Version None)
Quarter: 2008Q1

REPORT INFORMATION
  Report Type: 
  Country: None (occurrence: None)
  Receive Date: 20080222
  Receipt Date: 20080212
  Transmission Date: 20080703
  Serious: Yes (Other)
  Sender: FDA-Public Use
  Company Number: 2008-01320

PATIENT
  Age: 54 Year
  Sex: Female

DRUGS (3)
  1. METHYLPREDNISOLONE ACETATE [Suspect]
     Indication: RENAL TRANSPLANT
  2. TACROLIMUS [Suspect]
     Indication: RENAL TRANSPLANT
  3. MYCPHENOLATE [Suspect]
     Indication: RENAL TRANSPLANT

REACTIONS (1)
  - CHRONIC MYELOID LEUKAEMIA [None]
